FAERS Safety Report 9284016 (Version 8)
Quarter: 2013Q4

REPORT INFORMATION
  Report Type: Spontaneous
  Country: US (occurrence: None)
  Receive Date: 20130503
  Receipt Date: 20131220
  Transmission Date: 20140711
  Serious: Yes (Hospitalization, Other)
  Sender: FDA-Public Use
  Company Number: 2013-001357

PATIENT
  Age: 71 Year
  Sex: Female
  Weight: 60.8 kg

DRUGS (5)
  1. ACTONEL [Suspect]
     Indication: OSTEOPOROSIS PROPHYLAXIS
     Route: 048
     Dates: start: 200611, end: 200812
  2. FOSAMAX D (ALENDRONATE SODIUM), COLECALCIFEROL) [Suspect]
     Indication: OSTEOPOROSIS PROPHYLAXIS
     Dosage: 70MG/2800 U ONCE WEEKLY, ORAL
     Route: 048
     Dates: start: 20061129, end: 2008
  3. FOSAMAX (ALENDRONATE SODIUM) [Suspect]
     Indication: OSTEOPOROSIS PROPHYLAXIS
     Dates: start: 200611, end: 200812
  4. ALENDRONATE SODIUM (ALENDRONATE SODIUM) (ALENDRONATE SODIUM) [Suspect]
     Indication: OSTEOPOROSIS PROPHYLAXIS
     Dates: start: 200812, end: 201009
  5. CALCIUM PLUS VITAMIN D (CALCIUM, COLECALICIFEROL) [Concomitant]

REACTIONS (19)
  - Femur fracture [None]
  - Low turnover osteopathy [None]
  - Pain [None]
  - Bone disorder [None]
  - Fall [None]
  - Osteogenesis imperfecta [None]
  - Stress fracture [None]
  - Fracture displacement [None]
  - Femur fracture [None]
  - Spondylopathy traumatic [None]
  - Foot deformity [None]
  - Ankle fracture [None]
  - Chondropathy [None]
  - Haemorrhagic anaemia [None]
  - Hot flush [None]
  - Night sweats [None]
  - Refusal of treatment by patient [None]
  - Diverticulitis [None]
  - Seborrhoeic keratosis [None]
